FAERS Safety Report 5375396-7 (Version None)
Quarter: 2007Q2

REPORT INFORMATION
  Report Type: 
  Country: None (occurrence: None)
  Receive Date: 20070629
  Receipt Date: 20070618
  Transmission Date: 20071010
  Serious: Yes (Other)
  Sender: FDA-Public Use
  Company Number: US-PFIZER INC-2007015755

PATIENT
  Sex: Female
  Weight: 74.8 kg

DRUGS (8)
  1. LYRICA [Suspect]
     Indication: NEURALGIA
     Dates: start: 20070119, end: 20070201
  2. ETANERCEPT [Concomitant]
  3. CLONAZEPAM [Concomitant]
  4. CYMBALTA [Concomitant]
     Dosage: DAILY DOSE:60MG
  5. TYLENOL [Concomitant]
     Dosage: FREQ:AS NEEDED
  6. OXYCONTIN [Concomitant]
  7. PERCOCET [Concomitant]
  8. BACLOFEN [Concomitant]

REACTIONS (16)
  - ANAEMIA [None]
  - ARTHRALGIA [None]
  - CEREBROVASCULAR ACCIDENT [None]
  - DIZZINESS [None]
  - FIBROMYALGIA [None]
  - GAIT DISTURBANCE [None]
  - HEMIPARESIS [None]
  - HYPERPHAGIA [None]
  - INSOMNIA [None]
  - OEDEMA PERIPHERAL [None]
  - PAIN [None]
  - PERIPHERAL COLDNESS [None]
  - PULSE ABSENT [None]
  - RHEUMATOID ARTHRITIS [None]
  - UNEVALUABLE EVENT [None]
  - WEIGHT INCREASED [None]
